FAERS Safety Report 24209174 (Version 1)
Quarter: 2024Q3

REPORT INFORMATION
  Report Type: Spontaneous
  Country: FR (occurrence: FR)
  Receive Date: 20240814
  Receipt Date: 20240814
  Transmission Date: 20241016
  Serious: Yes (Disabling)
  Sender: PFIZER
  Company Number: None

PATIENT
  Age: 65 Year
  Sex: Female
  Weight: 114 kg

DRUGS (2)
  1. CARBOPLATIN [Suspect]
     Active Substance: CARBOPLATIN
     Indication: Endometrial adenocarcinoma
     Dosage: 635 MG, EVERY 3 WEEKS
     Route: 042
     Dates: start: 20240612, end: 20240703
  2. PACLITAXEL [Suspect]
     Active Substance: PACLITAXEL
     Indication: Endometrial adenocarcinoma
     Dosage: 175 MG/M2, EVERY 3 WEEKS
     Route: 042
     Dates: start: 20240612, end: 20240703

REACTIONS (2)
  - Retinal vein occlusion [Not Recovered/Not Resolved]
  - Off label use [Unknown]

NARRATIVE: CASE EVENT DATE: 20240612
